FAERS Safety Report 19005723 (Version 6)
Quarter: 2024Q4

REPORT INFORMATION
  Report Type: Spontaneous
  Country: GB (occurrence: GB)
  Receive Date: 20210314
  Receipt Date: 20241120
  Transmission Date: 20250115
  Serious: Yes (Hospitalization, Other)
  Sender: AMGEN
  Company Number: GB-PFIZER INC-2021233825

PATIENT
  Age: 70 Year
  Sex: Female

DRUGS (1)
  1. ENBREL [Suspect]
     Active Substance: ETANERCEPT
     Indication: Rheumatoid arthritis
     Dosage: 25 MILLIGRAM, QWK
     Route: 058

REACTIONS (5)
  - Lower respiratory tract infection [Unknown]
  - Pneumonia [Unknown]
  - Urinary tract infection [Unknown]
  - COVID-19 [Unknown]
  - Off label use [Unknown]
